FAERS Safety Report 13580451 (Version 2)
Quarter: 2017Q3

REPORT INFORMATION
  Report Type: Spontaneous
  Country: GR (occurrence: GR)
  Receive Date: 20170525
  Receipt Date: 20170711
  Transmission Date: 20171127
  Serious: Yes (Other)
  Sender: FDA-Public Use
  Company Number: GR-PFIZER INC-2017222524

PATIENT
  Age: 17 Year
  Sex: Male

DRUGS (1)
  1. VENLAFAXINE HCL [Suspect]
     Active Substance: VENLAFAXINE HYDROCHLORIDE
     Indication: AUTISM SPECTRUM DISORDER
     Dosage: 150 MG, DAILY

REACTIONS (2)
  - Anger [Unknown]
  - Irritability [Unknown]
